FAERS Safety Report 24571298 (Version 2)
Quarter: 2024Q4

REPORT INFORMATION
  Report Type: Report from Study
  Country: US (occurrence: US)
  Receive Date: 20241101
  Receipt Date: 20241126
  Transmission Date: 20250114
  Serious: Yes (Other)
  Sender: ABBVIE
  Company Number: US-ABBVIE-5985358

PATIENT
  Age: 66 Year
  Sex: Male
  Weight: 80 kg

DRUGS (2)
  1. HUMIRA [Suspect]
     Active Substance: ADALIMUMAB
     Indication: Crohn^s disease
     Dosage: FORM STRENGTH: 40 MILLIGRAM
     Route: 058
     Dates: start: 20160125
  2. ALLEGRA [Concomitant]
     Active Substance: FEXOFENADINE HYDROCHLORIDE
     Indication: Multiple allergies

REACTIONS (8)
  - Osteoarthritis [Recovered/Resolved]
  - Dental implantation [Unknown]
  - Renal cancer stage II [Recovered/Resolved]
  - Dental restoration failure [Recovering/Resolving]
  - Tooth fracture [Recovering/Resolving]
  - Implant site pain [Recovered/Resolved]
  - Renal neoplasm [Recovered/Resolved]
  - Dental implantation [Unknown]

NARRATIVE: CASE EVENT DATE: 20200101
